FAERS Safety Report 12479652 (Version 1)
Quarter: 2016Q2

REPORT INFORMATION
  Report Type: Spontaneous
  Country: US (occurrence: US)
  Receive Date: 20160620
  Receipt Date: 20160620
  Transmission Date: 20160815
  Serious: No
  Sender: FDA-Public Use
  Company Number: US-BAYER-2016-115716

PATIENT
  Sex: Female
  Weight: 52.6 kg

DRUGS (10)
  1. VARENICLINE [Concomitant]
     Active Substance: VARENICLINE
     Dosage: 1 MG, BID
  2. POLYETHYLENE GLYCOL 3350. [Concomitant]
     Active Substance: POLYETHYLENE GLYCOL 3350
     Route: 048
  3. ESTRADIOL. [Concomitant]
     Active Substance: ESTRADIOL
     Dosage: 0.5 MG, QD
     Route: 048
  4. VARENICLINE [Concomitant]
     Active Substance: VARENICLINE
     Dosage: 0.5 MG, QD
  5. ALEVE [Suspect]
     Active Substance: NAPROXEN SODIUM
  6. HYDROCHLOROTHIAZIDE. [Concomitant]
     Active Substance: HYDROCHLOROTHIAZIDE
     Dosage: 25 MG, QD
     Route: 048
  7. LOSARTAN POTASSIUM. [Concomitant]
     Active Substance: LOSARTAN POTASSIUM
     Dosage: 100 MG, QD
     Route: 048
  8. ACETAMINOPHEN\HYDROCODONE BITARTRATE [Concomitant]
     Active Substance: ACETAMINOPHEN\HYDROCODONE BITARTRATE
     Dosage: 10-325 MG
     Route: 048
  9. VARENICLINE [Concomitant]
     Active Substance: VARENICLINE
     Dosage: 0.5 MG, BID
  10. DILTIAZEM HCL [Concomitant]
     Active Substance: DILTIAZEM HYDROCHLORIDE
     Dosage: 300 MG, UNK
     Route: 048

REACTIONS (3)
  - Drug hypersensitivity [None]
  - Nausea [None]
  - Vomiting [None]
